FAERS Safety Report 14754104 (Version 2)
Quarter: 2018Q2

REPORT INFORMATION
  Report Type: Spontaneous
  Country: JP (occurrence: JP)
  Receive Date: 20180412
  Receipt Date: 20180426
  Transmission Date: 20180711
  Serious: Yes (Life-Threatening, Hospitalization, Other)
  Sender: FDA-Public Use
  Company Number: JP-SHIRE-2015BAX023315AA

PATIENT
  Age: 49 Year
  Sex: Male
  Weight: 85 kg

DRUGS (4)
  1. ADVATE [Suspect]
     Active Substance: ANTIHEMOPHILIC FACTOR, HUMAN RECOMBINANT
     Indication: FACTOR VIII DEFICIENCY
     Dosage: UNK
     Route: 042
     Dates: start: 201608
  2. ADVATE [Suspect]
     Active Substance: ANTIHEMOPHILIC FACTOR, HUMAN RECOMBINANT
     Indication: FACTOR VIII DEFICIENCY
     Dosage: UNK
     Route: 042
     Dates: start: 201608
  3. ADVATE [Suspect]
     Active Substance: ANTIHEMOPHILIC FACTOR, HUMAN RECOMBINANT
     Indication: FACTOR VIII DEFICIENCY
     Dosage: 2000IU (INTERNATIONAL UNIT)3X A WEEK
     Route: 042
  4. ADVATE [Suspect]
     Active Substance: ANTIHEMOPHILIC FACTOR, HUMAN RECOMBINANT
     Dosage: UNK
     Route: 042

REACTIONS (9)
  - Hepatocellular carcinoma [Recovered/Resolved]
  - Hepatic cirrhosis [Recovered/Resolved]
  - Therapeutic embolisation [Unknown]
  - Antibody test positive [Recovered/Resolved]
  - Haemophilic arthropathy [Recovered/Resolved]
  - Anti-platelet antibody positive [Not Recovered/Not Resolved]
  - Hypersplenism [Recovered/Resolved]
  - Platelet count decreased [Recovered/Resolved]
  - Haemorrhage [Recovered/Resolved]

NARRATIVE: CASE EVENT DATE: 2013
